FAERS Safety Report 5823441-4 (Version None)
Quarter: 2008Q3

REPORT INFORMATION
  Report Type: 
  Country: None (occurrence: None)
  Receive Date: 20080725
  Receipt Date: 20071009
  Transmission Date: 20090109
  Serious: No
  Sender: FDA-Public Use
  Company Number: US-ABBOTT-07P-163-0420643-00

PATIENT

DRUGS (6)
  1. RITONAVIR [Suspect]
     Indication: DRUG USE FOR UNKNOWN INDICATION
  2. ATAZANAVIR [Suspect]
     Indication: DRUG USE FOR UNKNOWN INDICATION
  3. PROCHLORPERAZINE [Concomitant]
     Indication: DRUG USE FOR UNKNOWN INDICATION
  4. LOPERAMIDE HCL [Concomitant]
     Indication: DRUG USE FOR UNKNOWN INDICATION
  5. TRAZODONE HCL [Concomitant]
     Indication: DRUG USE FOR UNKNOWN INDICATION
  6. ACETAMINOPHEN [Concomitant]
     Indication: DRUG USE FOR UNKNOWN INDICATION

REACTIONS (2)
  - HYPERBILIRUBINAEMIA [None]
  - OCULAR ICTERUS [None]
